FAERS Safety Report 4467519-9 (Version None)
Quarter: 2004Q4

REPORT INFORMATION
  Report Type: 
  Country: None (occurrence: None)
  Receive Date: 20041006
  Receipt Date: 20040930
  Transmission Date: 20050328
  Serious: Yes (Other)
  Sender: FDA-Public Use
  Company Number: US-MERCK-0410USA00031

PATIENT
  Age: 77 Year
  Sex: Female

DRUGS (6)
  1. ASPIRIN [Concomitant]
     Route: 065
  2. ISOSORBIDE MONONITRATE [Concomitant]
     Route: 065
  3. PRINIVIL [Concomitant]
     Route: 048
  4. METOPROLOL [Concomitant]
     Route: 065
  5. VIOXX [Suspect]
     Indication: ARTHRITIS
     Route: 048
     Dates: end: 20040930
  6. VITAMINS (UNSPECIFIED) [Concomitant]
     Route: 065

REACTIONS (1)
  - SILENT MYOCARDIAL INFARCTION [None]
